FAERS Safety Report 8380393-3 (Version None)
Quarter: 2012Q2

REPORT INFORMATION
  Report Type: 
  Country: None (occurrence: None)
  Receive Date: 20120523
  Receipt Date: 20120517
  Transmission Date: 20120825
  Serious: Yes (Hospitalization)
  Sender: FDA-Public Use
  Company Number: US-GLAXOSMITHKLINE-A0733231A

PATIENT
  Age: 50 Year
  Sex: Male
  Weight: 113.6 kg

DRUGS (3)
  1. AVANDIA [Suspect]
     Indication: TYPE 2 DIABETES MELLITUS
     Dosage: 8MG PER DAY
     Route: 048
     Dates: start: 20011019, end: 20030701
  2. METFORMIN HCL [Concomitant]
     Dates: start: 20020212, end: 20080401
  3. GLUCOPHAGE [Concomitant]
     Dates: start: 20010907, end: 20080401

REACTIONS (3)
  - CARDIAC DISORDER [None]
  - SYNCOPE [None]
  - CARDIAC FAILURE CONGESTIVE [None]
